FAERS Safety Report 9316319 (Version 1)
Quarter: 2012Q4

REPORT INFORMATION
  Report Type: Spontaneous
  Country: US (occurrence: None)
  Receive Date: 20121206
  Receipt Date: 20121206
  Transmission Date: 20130627
  Serious: Yes (Death)
  Sender: FDA-Public Use
  Company Number: ADR-UNK-087

PATIENT

DRUGS (2)
  1. EFAVIRENZ [Suspect]
     Indication: ACQUIRED IMMUNODEFICIENCY SYNDROME
     Route: 048
     Dates: start: 20120109, end: 20120624
  2. TENOFOVIR DISOPROXIL FUMARATE + EMTRICITABINE (TRUVADAOTVD) [Concomitant]

REACTIONS (3)
  - Maternal exposure during pregnancy [None]
  - Abortion spontaneous [None]
  - Maternal drugs affecting foetus [None]
